FAERS Safety Report 4704695-4 (Version None)
Quarter: 2005Q2

REPORT INFORMATION
  Report Type: 
  Country: None (occurrence: None)
  Receive Date: 20050630
  Receipt Date: 20050621
  Transmission Date: 20051028
  Serious: Yes (Hospitalization)
  Sender: FDA-Public Use
  Company Number: US-MERCK-0506USA03088

PATIENT
  Sex: Female

DRUGS (2)
  1. VIOXX [Suspect]
     Indication: OSTEOARTHRITIS
     Route: 048
     Dates: start: 20010101
  2. VIOXX [Suspect]
     Route: 048
     Dates: start: 20010101

REACTIONS (2)
  - NAUSEA [None]
  - SYNCOPE [None]
